FAERS Safety Report 18853507 (Version 5)
Quarter: 2021Q1

REPORT INFORMATION
  Report Type: Report from Study
  Country: BE (occurrence: BE)
  Receive Date: 20210205
  Receipt Date: 20210317
  Transmission Date: 20210420
  Serious: Yes (Hospitalization)
  Sender: FDA-Public Use
  Company Number: BE-ROCHE-2751757

PATIENT
  Age: 77 Year
  Sex: Female
  Weight: 59.6 kg

DRUGS (44)
  1. RO7082859 (CD20/C3 T?CELL BISPECIFIC MAB) [Suspect]
     Active Substance: GLOFITAMAB
     Indication: B-CELL LYMPHOMA REFRACTORY
     Dosage: DOSE LAST STUDY DRUG ADMIN PRIOR SAE 2.5 MG?12/JAN/2021 AT 10:50 AM TO 7:10 AM, MOST RECENT DOSE OF
     Route: 042
     Dates: start: 20210105
  2. MOVICOL [Concomitant]
     Active Substance: POLYETHYLENE GLYCOL 3350\POTASSIUM CHLORIDE\SODIUM BICARBONATE\SODIUM CHLORIDE
     Dosage: 1 SACHET
     Route: 048
     Dates: start: 20210107, end: 20210107
  3. ROSUVASTATINE [Concomitant]
     Active Substance: ROSUVASTATIN
     Dates: start: 20201228
  4. AMLODIPINE [Concomitant]
     Active Substance: AMLODIPINE BESYLATE
     Dates: start: 20201231
  5. SODIUM BICARBONATE. [Concomitant]
     Active Substance: SODIUM BICARBONATE
     Dates: start: 20201230, end: 20201230
  6. OXYGEN. [Concomitant]
     Active Substance: OXYGEN
     Indication: OXYGEN SATURATION DECREASED
     Dosage: 1 L/MIN
     Route: 045
     Dates: start: 20210107, end: 20210107
  7. SOLU?MEDROL [Concomitant]
     Active Substance: METHYLPREDNISOLONE SODIUM SUCCINATE
     Dates: start: 20201229
  8. ROSUVASTATINE [Concomitant]
     Active Substance: ROSUVASTATIN
     Dates: start: 20201230
  9. OBINUTUZUMAB. [Suspect]
     Active Substance: OBINUTUZUMAB
     Indication: B-CELL LYMPHOMA REFRACTORY
     Dosage: LAST STUDY DRUG ADMIN PRIOR SAE 1000 MG?ON 29/DEC/2020, AT 12:00 PM TO 6:04 PM,?AS PER PROTOCOL (SIN
     Route: 042
     Dates: start: 20201229
  10. TAVEGYL [Concomitant]
     Active Substance: CLEMASTINE FUMARATE
     Dates: start: 20210112
  11. TAVEGYL [Concomitant]
     Active Substance: CLEMASTINE FUMARATE
     Dates: start: 20201229
  12. MOVICOL [Concomitant]
     Active Substance: POLYETHYLENE GLYCOL 3350\POTASSIUM CHLORIDE\SODIUM BICARBONATE\SODIUM CHLORIDE
     Dosage: 1 SACHET
     Route: 048
     Dates: start: 20210108, end: 20210111
  13. MOVICOL [Concomitant]
     Active Substance: POLYETHYLENE GLYCOL 3350\POTASSIUM CHLORIDE\SODIUM BICARBONATE\SODIUM CHLORIDE
     Dosage: 1 SACHET
     Route: 048
     Dates: start: 20210111, end: 20210111
  14. MAGNESIUM SULFATE. [Concomitant]
     Active Substance: MAGNESIUM SULFATE
     Dates: start: 20210105, end: 20210105
  15. NACL [Concomitant]
     Active Substance: SODIUM CHLORIDE
     Indication: HYPERKALAEMIA
     Route: 042
     Dates: start: 20210111, end: 20210114
  16. TRAMADOL. [Concomitant]
     Active Substance: TRAMADOL
     Indication: HEADACHE
     Route: 042
     Dates: start: 20210106, end: 20210106
  17. TAVEGYL [Concomitant]
     Active Substance: CLEMASTINE FUMARATE
     Dates: start: 20210105
  18. MOVICOL [Concomitant]
     Active Substance: POLYETHYLENE GLYCOL 3350\POTASSIUM CHLORIDE\SODIUM BICARBONATE\SODIUM CHLORIDE
     Dosage: 1 SACHET
     Route: 048
     Dates: start: 20210105, end: 20210106
  19. MAGNESIUM SULFATE. [Concomitant]
     Active Substance: MAGNESIUM SULFATE
     Indication: HYPOMAGNESAEMIA
     Route: 042
     Dates: start: 20201229, end: 20201230
  20. ALLOPURINOL. [Concomitant]
     Active Substance: ALLOPURINOL
     Dates: start: 20201228, end: 20210204
  21. AMLODIPINE [Concomitant]
     Active Substance: AMLODIPINE BESYLATE
     Dates: start: 20210105, end: 20210105
  22. CEDOCARD [Concomitant]
     Active Substance: ISOSORBIDE DINITRATE
     Dates: start: 20201228, end: 20201231
  23. MOXONIDINE [Concomitant]
     Active Substance: MOXONIDINE
     Indication: HYPERTENSION
     Dates: start: 20201230
  24. HARTMANN [Concomitant]
     Active Substance: CALCIUM CHLORIDE\POTASSIUM CHLORIDE\SODIUM CHLORIDE\SODIUM LACTATE
     Dates: start: 20210104, end: 20210107
  25. PARACETAMOL [Concomitant]
     Active Substance: ACETAMINOPHEN
     Dates: start: 20201229
  26. OXYGEN. [Concomitant]
     Active Substance: OXYGEN
     Indication: HYPOXIA
     Dosage: 2 L/MIN
     Route: 045
     Dates: start: 20201231, end: 20201231
  27. LASIX [Concomitant]
     Active Substance: FUROSEMIDE
     Indication: OEDEMA
     Route: 042
     Dates: start: 20210107, end: 20210107
  28. MOVICOL [Concomitant]
     Active Substance: POLYETHYLENE GLYCOL 3350\POTASSIUM CHLORIDE\SODIUM BICARBONATE\SODIUM CHLORIDE
     Indication: CONSTIPATION
     Dosage: 1 SACHET
     Route: 048
     Dates: start: 20201230
  29. ACICLOVIR [Concomitant]
     Active Substance: ACYCLOVIR
     Dates: start: 20130930, end: 20210104
  30. ASAFLOW [Concomitant]
     Active Substance: ASPIRIN
     Dates: start: 20130805
  31. MOVICOL [Concomitant]
     Active Substance: POLYETHYLENE GLYCOL 3350\POTASSIUM CHLORIDE\SODIUM BICARBONATE\SODIUM CHLORIDE
     Dosage: 1 SACHET
     Route: 048
     Dates: start: 20210113, end: 20210113
  32. AMLODIPINE [Concomitant]
     Active Substance: AMLODIPINE BESYLATE
     Indication: HYPERTENSION
     Dates: start: 20201228, end: 20201229
  33. AMLODIPINE [Concomitant]
     Active Substance: AMLODIPINE BESYLATE
     Dates: start: 20201230, end: 20201230
  34. TRADONAL ODIS [Concomitant]
     Indication: PAIN
     Dates: start: 20201228, end: 20201228
  35. SOLU?MEDROL [Concomitant]
     Active Substance: METHYLPREDNISOLONE SODIUM SUCCINATE
     Dates: start: 20210105
  36. BISOPROLOL [Concomitant]
     Active Substance: BISOPROLOL
     Indication: HYPERTENSION
     Dates: start: 20161206
  37. LISINOPRIL. [Concomitant]
     Active Substance: LISINOPRIL
     Indication: HYPERTENSION
     Dates: start: 20160706, end: 20201228
  38. OMEPRAZOLE. [Concomitant]
     Active Substance: OMEPRAZOLE
     Dates: start: 20131007
  39. GLUCOSE [Concomitant]
     Active Substance: DEXTROSE
     Indication: HYPERKALAEMIA
     Route: 042
     Dates: start: 20210111, end: 20210114
  40. LASIX [Concomitant]
     Active Substance: FUROSEMIDE
     Route: 042
     Dates: start: 20201229, end: 20201230
  41. SOLU?MEDROL [Concomitant]
     Active Substance: METHYLPREDNISOLONE SODIUM SUCCINATE
     Dates: start: 20210112
  42. ACTOSOLV [Concomitant]
     Indication: DEVICE MALFUNCTION
     Route: 042
     Dates: start: 20210104, end: 20210104
  43. ACICLOVIR [Concomitant]
     Active Substance: ACYCLOVIR
     Dates: start: 20210108
  44. RANITIDINE. [Concomitant]
     Active Substance: RANITIDINE
     Dates: start: 20131007, end: 20201228

REACTIONS (2)
  - Infusion related reaction [Recovered/Resolved]
  - Cytokine release syndrome [Recovered/Resolved]

NARRATIVE: CASE EVENT DATE: 20201229
